FAERS Safety Report 18144350 (Version 1)
Quarter: 2020Q3

REPORT INFORMATION
  Report Type: Spontaneous
  Country: US (occurrence: US)
  Receive Date: 20200812
  Receipt Date: 20200812
  Transmission Date: 20201103
  Serious: Yes (Hospitalization)
  Sender: FDA-Public Use
  Company Number: None

PATIENT
  Age: 60 Year
  Sex: Male

DRUGS (1)
  1. NAPROXEN (NAPROXEN 500 MG TAB) [Suspect]
     Active Substance: NAPROXEN
     Indication: ARTHRALGIA
     Route: 048
     Dates: start: 20190306, end: 20190405

REACTIONS (6)
  - Dizziness [None]
  - Gastric haemorrhage [None]
  - Gastritis [None]
  - Varices oesophageal [None]
  - Portal hypertensive gastropathy [None]
  - Haematemesis [None]

NARRATIVE: CASE EVENT DATE: 20190312
